FAERS Safety Report 4482765-6 (Version None)
Quarter: 2004Q3

REPORT INFORMATION
  Report Type: 
  Country: None (occurrence: None)
  Receive Date: 20040921
  Receipt Date: 20040521
  Transmission Date: 20050211
  Serious: Yes (Hospitalization)
  Sender: FDA-Public Use
  Company Number: 163-20785-04050586 (0)

PATIENT
  Age: 48 Year
  Sex: Male

DRUGS (2)
  1. THALOMID [Suspect]
     Indication: HEPATIC NEOPLASM MALIGNANT
     Dosage: 400 MG, QHS, ORAL
     Route: 048
     Dates: start: 20040317, end: 20040601
  2. XELODA [Suspect]
     Indication: HEPATIC NEOPLASM MALIGNANT
     Dosage: 750MG/M^2, BID, ORAL
     Route: 048
     Dates: start: 20040317, end: 20040601

REACTIONS (1)
  - ASCITES [None]
